APPROVED DRUG PRODUCT: FLUOXETINE HYDROCHLORIDE
Active Ingredient: FLUOXETINE HYDROCHLORIDE
Strength: EQ 20MG BASE
Dosage Form/Route: CAPSULE;ORAL
Application: A076287 | Product #002
Applicant: ANI PHARMACEUTICALS INC
Approved: May 20, 2008 | RLD: No | RS: No | Type: DISCN